FAERS Safety Report 6582898-4 (Version None)
Quarter: 2010Q1

REPORT INFORMATION
  Report Type: 
  Country: None (occurrence: None)
  Receive Date: 20100204
  Receipt Date: 20100126
  Transmission Date: 20100710
  Serious: Yes (Death)
  Sender: FDA-Public Use
  Company Number: 2009-03388

PATIENT
  Age: 73 Year
  Sex: Male
  Weight: 64 kg

DRUGS (8)
  1. VELCADE [Suspect]
     Indication: MULTIPLE MYELOMA
     Dosage: 3 MG/M2, INTRAVENOUS
     Route: 042
     Dates: start: 20090727, end: 20090730
  2. ZOMETA [Suspect]
     Indication: HYPERCALCAEMIA
     Dosage: 4 MG, INTRAVENOUS
     Route: 042
     Dates: start: 20090730, end: 20090730
  3. DEXAMETHASONE TAB [Concomitant]
  4. LAMAR (TEGAFUR) [Concomitant]
  5. FAMOTIDINE [Concomitant]
  6. ALLOPURINOL [Concomitant]
  7. MUCODYNE (CARBOCISTEINE) [Concomitant]
  8. MAGNESIUM OXIDE (MAGNESIUM OXIDE) [Concomitant]

REACTIONS (5)
  - CARDIAC ARREST [None]
  - DYSPHAGIA [None]
  - PNEUMONIA ASPIRATION [None]
  - THALAMUS HAEMORRHAGE [None]
  - VOMITING [None]
